FAERS Safety Report 15230427 (Version 1)
Quarter: 2018Q3

REPORT INFORMATION
  Report Type: Spontaneous
  Country: US (occurrence: US)
  Receive Date: 20180802
  Receipt Date: 20180802
  Transmission Date: 20181010
  Serious: Yes (Other)
  Sender: FDA-Public Use
  Company Number: US-CIPLA LTD.-2018US20479

PATIENT

DRUGS (1)
  1. TERBINAFINE. [Suspect]
     Active Substance: TERBINAFINE
     Indication: FUNGAL INFECTION
     Dosage: 250 MG, QD, ONE TABLET, FOR 17 DAYS
     Route: 065

REACTIONS (6)
  - Tunnel vision [Recovered/Resolved]
  - Anxiety [Recovering/Resolving]
  - Feeling abnormal [Unknown]
  - Ocular discomfort [Recovered/Resolved]
  - Diplopia [Recovered/Resolved]
  - Eye irritation [Recovered/Resolved]
